FAERS Safety Report 13815309 (Version 1)
Quarter: 2017Q3

REPORT INFORMATION
  Report Type: Spontaneous
  Country: US (occurrence: US)
  Receive Date: 20170729
  Receipt Date: 20170729
  Transmission Date: 20171127
  Serious: Yes (Death, Life-Threatening, Hospitalization, Disabling, Other)
  Sender: FDA-Public Use
  Company Number: None

PATIENT
  Age: 75 Year
  Sex: Male
  Weight: 85.5 kg

DRUGS (9)
  1. C-PAP [Concomitant]
  2. DIOVAN [Concomitant]
     Active Substance: VALSARTAN
  3. VITAMIN D [Concomitant]
     Active Substance: CHOLECALCIFEROL
  4. AMIODARONE [Suspect]
     Active Substance: AMIODARONE
     Indication: ATRIAL FIBRILLATION
     Dosage: ?          QUANTITY:1 TABLET(S);?
     Route: 048
     Dates: start: 20150301, end: 20170726
  5. TOPRAL [Concomitant]
     Active Substance: SULTOPRIDE HYDROCHLORIDE
  6. AVODART [Concomitant]
     Active Substance: DUTASTERIDE
  7. AMIODARONE [Concomitant]
     Active Substance: AMIODARONE
  8. ASPIRIN. [Concomitant]
     Active Substance: ASPIRIN
  9. SYNTHROID [Concomitant]
     Active Substance: LEVOTHYROXINE SODIUM

REACTIONS (2)
  - Toxicity to various agents [None]
  - Pulmonary embolism [None]

NARRATIVE: CASE EVENT DATE: 20160719
